FAERS Safety Report 7456114-5 (Version None)
Quarter: 2011Q2

REPORT INFORMATION
  Report Type: 
  Country: None (occurrence: None)
  Receive Date: 20110503
  Receipt Date: 20110428
  Transmission Date: 20111010
  Serious: Yes (Hospitalization)
  Sender: FDA-Public Use
  Company Number: JP-B.I. PHARMACEUTICALS,INC./RIDGEFIELD-2011-BP-06761YA

PATIENT
  Age: 86 Year
  Sex: Male

DRUGS (12)
  1. SPIRIVA [Suspect]
     Dates: start: 20101015, end: 20101208
  2. NORVASC [Suspect]
     Dosage: 10 MG
     Route: 048
     Dates: start: 20040906, end: 20101208
  3. SELBEX (TEPRENONE) [Concomitant]
     Dates: start: 20071225, end: 20101208
  4. VESICARE [Suspect]
     Indication: HYPERTONIC BLADDER
     Route: 048
     Dates: start: 20091215, end: 20101208
  5. HOKUNALIN (TULOBUTEROL HYDROCHLORIDE) [Concomitant]
     Dates: start: 20071001, end: 20101208
  6. KIPRES [Suspect]
     Indication: ASTHMA
     Route: 048
     Dates: start: 20100209
  7. DICLOFENAC SODIUM [Concomitant]
     Dates: start: 20080507, end: 20080716
  8. CELECOX [Suspect]
     Indication: OSTEOARTHRITIS
     Dosage: 200 MG
     Route: 048
     Dates: start: 20071225, end: 20101208
  9. HOCHUUEKKITOU [Suspect]
  10. HOCHUUEKKITOU (HERBAL EXTRACT NOS) [Concomitant]
     Dates: start: 20060616, end: 20101208
  11. FLOMAX [Suspect]
     Indication: BENIGN PROSTATIC HYPERPLASIA
     Route: 048
     Dates: start: 20060516, end: 20101208
  12. DRUG FOR HEART FAILURE [Concomitant]
     Indication: CARDIAC FAILURE

REACTIONS (1)
  - CARDIAC FAILURE [None]
